FAERS Safety Report 11883843 (Version 1)
Quarter: 2016Q1

REPORT INFORMATION
  Report Type: Spontaneous
  Country: GB (occurrence: GB)
  Receive Date: 20160101
  Receipt Date: 20160101
  Transmission Date: 20160526
  Serious: Yes (Other)
  Sender: FDA-Public Use
  Company Number: GB-AMGEN-GBRSP2015139701

PATIENT
  Age: 64 Year
  Sex: Female

DRUGS (3)
  1. SENSIPAR [Suspect]
     Active Substance: CINACALCET HYDROCHLORIDE
     Indication: PRODUCT USED FOR UNKNOWN INDICATION
     Route: 065
  2. SEVELAMER [Concomitant]
     Active Substance: SEVELAMER
  3. DABIGATRAN [Concomitant]
     Active Substance: DABIGATRAN

REACTIONS (1)
  - Blood parathyroid hormone decreased [Unknown]
